FAERS Safety Report 18663750 (Version 1)
Quarter: 2020Q4

REPORT INFORMATION
  Report Type: Spontaneous
  Country: IR (occurrence: IR)
  Receive Date: 20201224
  Receipt Date: 20201224
  Transmission Date: 20210114
  Serious: No
  Sender: FDA-Public Use
  Company Number: IR-LUPIN PHARMACEUTICALS INC.-2020-09032

PATIENT
  Age: 23 Year
  Sex: Female

DRUGS (6)
  1. CEFAZOLINE [Suspect]
     Active Substance: CEFAZOLIN SODIUM
     Indication: EVIDENCE BASED TREATMENT
     Dosage: 1 GRAM, TID (EVERY 8 HOUR) (FORMULATION: AMPULE)
     Route: 042
  2. PIPERACILLIN AND TAZOBACTAM [Suspect]
     Active Substance: PIPERACILLIN SODIUM\TAZOBACTAM SODIUM
     Indication: ANTIBIOTIC THERAPY
     Dosage: 4.5 GRAM, TID (EVERY 8 HOUR)
     Route: 042
  3. CEPHALEXIN CAPSULES [Suspect]
     Active Substance: CEPHALEXIN
     Indication: EVIDENCE BASED TREATMENT
     Dosage: 500 MILLIGRAM, QID (EVERY 6 HOUR)
     Route: 048
  4. CEPHALEXIN CAPSULES [Suspect]
     Active Substance: CEPHALEXIN
     Indication: ANTIBIOTIC THERAPY
  5. CEFAZOLINE [Suspect]
     Active Substance: CEFAZOLIN SODIUM
     Indication: ANTIBIOTIC THERAPY
  6. DICLOXACILLINE [Suspect]
     Active Substance: DICLOXACILLIN
     Indication: ANTIBIOTIC THERAPY
     Dosage: 500 MILLIGRAM, QID (EVERY 6 HOUR)
     Route: 048

REACTIONS (3)
  - Exposure during pregnancy [Unknown]
  - Normal newborn [Unknown]
  - Drug ineffective [Unknown]
